FAERS Safety Report 18458931 (Version 1)
Quarter: 2020Q4

REPORT INFORMATION
  Report Type: Spontaneous
  Country: SE (occurrence: SE)
  Receive Date: 20201103
  Receipt Date: 20201103
  Transmission Date: 20210114
  Serious: Yes (Life-Threatening, Hospitalization, Disabling)
  Sender: FDA-Public Use
  Company Number: SE-TEVA-2020-SE-1844147

PATIENT
  Age: 53 Year
  Sex: Male

DRUGS (16)
  1. MIRTAZAPINE. [Suspect]
     Active Substance: MIRTAZAPINE
     Indication: POST-TRAUMATIC STRESS DISORDER
  2. MELATONIN [Concomitant]
     Active Substance: MELATONIN
     Dosage: 5 TN
     Dates: start: 2019, end: 20200926
  3. ZOPICLONE [Concomitant]
     Active Substance: ZOPICLONE
     Dosage: 1 TN
     Dates: start: 2013, end: 20200926
  4. MIRTAZAPINE. [Suspect]
     Active Substance: MIRTAZAPINE
     Indication: SCHIZOAFFECTIVE DISORDER
     Dosage: 30 MG 1.5 TN
     Route: 048
     Dates: start: 2013, end: 20200926
  5. TROMBYL 75 MG TABLETT [Concomitant]
     Active Substance: ASPIRIN
     Dates: start: 2015, end: 20201002
  6. OLANZAPINE. [Suspect]
     Active Substance: OLANZAPINE
     Indication: POST-TRAUMATIC STRESS DISORDER
     Dosage: 10 MG 3 TN
     Route: 048
     Dates: start: 2013, end: 20200926
  7. BUSPIRONE [Suspect]
     Active Substance: BUSPIRONE HYDROCHLORIDE
     Indication: SCHIZOAFFECTIVE DISORDER
     Dosage: 10 MG 3X2
     Route: 048
     Dates: start: 2017, end: 20200926
  8. BUSPIRONE [Suspect]
     Active Substance: BUSPIRONE HYDROCHLORIDE
     Indication: POST-TRAUMATIC STRESS DISORDER
  9. OLANZAPINE. [Suspect]
     Active Substance: OLANZAPINE
     Indication: SCHIZOAFFECTIVE DISORDER
  10. QUETIAPINE. [Suspect]
     Active Substance: QUETIAPINE
     Indication: SCHIZOAFFECTIVE DISORDER
     Dosage: 25 MG 2-4 TN
     Route: 048
     Dates: start: 2019, end: 20200926
  11. NOZINAN (LEVOMEPROMAZINE MALEATE) [Suspect]
     Active Substance: LEVOMEPROMAZINE MALEATE
     Indication: SCHIZOAFFECTIVE DISORDER
     Dosage: 25 MG 3 TN
     Route: 048
     Dates: start: 2018, end: 20200926
  12. NOZINAN (LEVOMEPROMAZINE MALEATE) [Suspect]
     Active Substance: LEVOMEPROMAZINE MALEATE
     Indication: POST-TRAUMATIC STRESS DISORDER
  13. STESOLID 5 MG TABLETT [Concomitant]
     Active Substance: DIAZEPAM
     Dosage: TAKEN UP TO 6 PCS / DAY
     Dates: start: 2014, end: 20200926
  14. PROPAVAN 25 MG TABLETT [Concomitant]
     Active Substance: PROPIOMAZINE
     Dosage: 2 TN
     Dates: start: 2017, end: 20200926
  15. QUETIAPINE. [Suspect]
     Active Substance: QUETIAPINE
     Indication: POST-TRAUMATIC STRESS DISORDER
  16. ATORVASTATIN [Concomitant]
     Active Substance: ATORVASTATIN
     Dates: start: 2017, end: 20201002

REACTIONS (3)
  - Accidental overdose [Not Recovered/Not Resolved]
  - Cerebrovascular accident [Not Recovered/Not Resolved]
  - Electrocardiogram QT prolonged [Not Recovered/Not Resolved]

NARRATIVE: CASE EVENT DATE: 20200926
